FAERS Safety Report 4761025-X (Version None)
Quarter: 2005Q3

REPORT INFORMATION
  Report Type: 
  Country: None (occurrence: None)
  Receive Date: 20050901
  Receipt Date: 20050824
  Transmission Date: 20060218
  Serious: Yes (Hospitalization)
  Sender: FDA-Public Use
  Company Number: COV2-2005-00215

PATIENT
  Age: 64 Year
  Sex: Female
  Weight: 100 kg

DRUGS (15)
  1. FOSRENOL [Suspect]
     Indication: HYPERPHOSPHATAEMIA
     Dosage: 1250 MG, 3X/DAY; TID, ORAL
     Route: 048
     Dates: start: 20050411, end: 20050810
  2. DIATEX (DIAZEPAM) [Concomitant]
  3. PREVACID [Concomitant]
  4. QUININE SULFATE [Concomitant]
  5. NEURONTIN [Concomitant]
  6. LASIX [Concomitant]
  7. NORTRIPTYLINE HCL [Concomitant]
  8. GLYBURIDE [Concomitant]
  9. ACTOS [Concomitant]
  10. ZOCOR [Concomitant]
  11. PAXIL [Concomitant]
  12. DIGOXIN [Concomitant]
  13. TIAZAC [Concomitant]
  14. PLAVIX [Concomitant]
  15. DIOVAN [Concomitant]

REACTIONS (3)
  - GASTROENTERITIS [None]
  - OCCULT BLOOD POSITIVE [None]
  - VIRAL INFECTION [None]
